FAERS Safety Report 10616205 (Version 1)
Quarter: 2014Q4

REPORT INFORMATION
  Report Type: Spontaneous
  Country: US (occurrence: None)
  Receive Date: 20141125
  Receipt Date: 20141125
  Transmission Date: 20150529
  Serious: Yes (Other)
  Sender: FDA-Public Use
  Company Number: None

PATIENT
  Age: 47 Year
  Sex: Female
  Weight: 79.83 kg

DRUGS (1)
  1. ESZOPICLONE. [Suspect]
     Active Substance: ESZOPICLONE
     Indication: SLEEP DISORDER
     Dosage: 1 PILL
     Route: 048
     Dates: start: 20141004, end: 20141031

REACTIONS (6)
  - Feeling abnormal [None]
  - Headache [None]
  - Product substitution issue [None]
  - Nausea [None]
  - Poor quality sleep [None]
  - Initial insomnia [None]

NARRATIVE: CASE EVENT DATE: 20141030
